FAERS Safety Report 8806316 (Version 3)
Quarter: 2012Q4

REPORT INFORMATION
  Report Type: 
  Country: US (occurrence: US)
  Receive Date: 20120925
  Receipt Date: 20121129
  Transmission Date: 20130627
  Serious: Yes (Hospitalization, Other)
  Sender: FDA-Public Use
  Company Number: US-BAYER-2012-098163

PATIENT
  Age: 19 Year
  Sex: Female
  Weight: 61.22 kg

DRUGS (2)
  1. YASMIN [Suspect]
  2. FIORICET [Concomitant]
     Indication: MIGRAINE HEADACHE
     Dosage: UNK UNK, PRN
     Route: 048
     Dates: start: 20080101

REACTIONS (7)
  - Pulmonary embolism [None]
  - Deep vein thrombosis [None]
  - Injury [None]
  - Pain [None]
  - Emotional distress [None]
  - Anxiety [None]
  - Fear of disease [None]
